FAERS Safety Report 4441842-6 (Version None)
Quarter: 2004Q3

REPORT INFORMATION
  Report Type: 
  Country: None (occurrence: None)
  Receive Date: 20040728
  Receipt Date: 20040510
  Transmission Date: 20050211
  Serious: No
  Sender: FDA-Public Use
  Company Number: USA040567099

PATIENT
  Age: 8 Year
  Sex: Male
  Weight: 30 kg

DRUGS (2)
  1. STRATTERA [Suspect]
     Indication: ATTENTION DEFICIT/HYPERACTIVITY DISORDER
     Dosage: 40 MG DAY
     Dates: start: 20031108, end: 20040508
  2. XANAX [Concomitant]

REACTIONS (7)
  - APPETITE DISORDER [None]
  - CONSTIPATION [None]
  - INITIAL INSOMNIA [None]
  - SOMNOLENCE [None]
  - STOMACH DISCOMFORT [None]
  - URINARY RETENTION [None]
  - VOMITING [None]
